FAERS Safety Report 7482644-6 (Version None)
Quarter: 2011Q2

REPORT INFORMATION
  Report Type: 
  Country: None (occurrence: None)
  Receive Date: 20110516
  Receipt Date: 20110505
  Transmission Date: 20111010
  Serious: Yes (Death, Other)
  Sender: FDA-Public Use
  Company Number: PHHY2011US39328

PATIENT
  Age: 47 Year
  Sex: Female

DRUGS (3)
  1. NILOTINIB [Suspect]
     Indication: LEUKAEMIA RECURRENT
     Dosage: 400 MG, BID
  2. IMATINIB [Suspect]
     Indication: ACUTE LYMPHOCYTIC LEUKAEMIA
     Dosage: 600 MG, DAILY
  3. CHEMOTHERAPEUTICS NOS [Concomitant]
     Indication: ACUTE LYMPHOCYTIC LEUKAEMIA

REACTIONS (8)
  - HEADACHE [None]
  - THROMBOCYTOPENIA [None]
  - SUBDURAL HAEMATOMA [None]
  - PNEUMONIA [None]
  - SPINAL CORD HERNIATION [None]
  - VISION BLURRED [None]
  - LEUKAEMIA RECURRENT [None]
  - PULMONARY HAEMORRHAGE [None]
